APPROVED DRUG PRODUCT: HYDRALAZINE HYDROCHLORIDE
Active Ingredient: HYDRALAZINE HYDROCHLORIDE
Strength: 10MG
Dosage Form/Route: TABLET;ORAL
Application: A088787 | Product #001
Applicant: SUPERPHARM CORP
Approved: Aug 28, 1984 | RLD: No | RS: No | Type: DISCN